FAERS Safety Report 9198765 (Version 1)
Quarter: 2013Q1

REPORT INFORMATION
  Report Type: Spontaneous
  Country: US (occurrence: None)
  Receive Date: 20130327
  Receipt Date: 20130327
  Transmission Date: 20140127
  Serious: Yes (Death)
  Sender: FDA-Public Use
  Company Number: None

PATIENT
  Age: 78 Year
  Sex: Female
  Weight: 75.1 kg

DRUGS (7)
  1. PONATINIB [Suspect]
     Indication: CHRONIC MYELOID LEUKAEMIA
     Dosage: 15MG QD EXCEPT MON, + FRI PO
     Dates: start: 20120718
  2. LEVOTHYROXINE [Concomitant]
  3. DILTIZEM [Concomitant]
  4. LOVASTATIN [Concomitant]
  5. ZOFRAN [Concomitant]
  6. FERROUS SULFATE [Concomitant]
  7. ADVIL [Concomitant]

REACTIONS (11)
  - Renal failure chronic [None]
  - Metabolic acidosis [None]
  - Acute respiratory distress syndrome [None]
  - Clostridium difficile sepsis [None]
  - Asthenia [None]
  - Fatigue [None]
  - Troponin increased [None]
  - Hyponatraemia [None]
  - Organ failure [None]
  - Pneumonia [None]
  - Blood pressure decreased [None]
